FAERS Safety Report 12537683 (Version 1)
Quarter: 2016Q3

REPORT INFORMATION
  Report Type: Spontaneous
  Country: IT (occurrence: IT)
  Receive Date: 20160707
  Receipt Date: 20160707
  Transmission Date: 20161109
  Serious: Yes (Hospitalization)
  Sender: FDA-Public Use
  Company Number: IT-UNICHEM LABORATORIES LIMITED-UCM201607-000143

PATIENT
  Age: 59 Year
  Sex: Male

DRUGS (2)
  1. DIVALPROEX SODIUM. [Suspect]
     Active Substance: DIVALPROEX SODIUM
     Indication: EPILEPSY
  2. LAMOTRIGINE. [Concomitant]
     Active Substance: LAMOTRIGINE

REACTIONS (9)
  - Cognitive disorder [Recovering/Resolving]
  - Pleurothotonus [Recovering/Resolving]
  - Memory impairment [Recovering/Resolving]
  - Sleep disorder [Recovering/Resolving]
  - Parkinsonism [Recovering/Resolving]
  - Dyscalculia [Recovering/Resolving]
  - Depression [Recovering/Resolving]
  - Weight decreased [Recovering/Resolving]
  - Somatic symptom disorder [Recovering/Resolving]
